FAERS Safety Report 7353558-7 (Version None)
Quarter: 2011Q1

REPORT INFORMATION
  Report Type: 
  Country: None (occurrence: None)
  Receive Date: 20110315
  Receipt Date: 20110302
  Transmission Date: 20110831
  Serious: Yes (Hospitalization)
  Sender: FDA-Public Use
  Company Number: IT-MYLANLABS-2011S1004157

PATIENT
  Age: 44 Year
  Sex: Male

DRUGS (3)
  1. DIAZEPAM [Suspect]
     Indication: DEPRESSION
     Route: 048
     Dates: start: 20110115, end: 20110115
  2. VOLTAREN [Concomitant]
     Indication: BACK PAIN
     Dosage: 75MG/3ML -5 AMPOULES
     Route: 030
     Dates: start: 20110111, end: 20110115
  3. MUSCORIL [Concomitant]
     Indication: BACK PAIN
     Dosage: 4MG/2ML INJECTION FOR IM USE - 6 AMPOULES 2 ML
     Route: 030
     Dates: start: 20110111, end: 20110115

REACTIONS (2)
  - MIOSIS [None]
  - SOPOR [None]
